FAERS Safety Report 16731696 (Version 4)
Quarter: 2021Q1

REPORT INFORMATION
  Report Type: Spontaneous
  Country: US (occurrence: US)
  Receive Date: 20190822
  Receipt Date: 20210301
  Transmission Date: 20210419
  Serious: Yes (Other)
  Sender: FDA-Public Use
  Company Number: US-SA-2019SA225951

PATIENT
  Age: 59 Year
  Sex: Male

DRUGS (1)
  1. DUPIXENT [Suspect]
     Active Substance: DUPILUMAB
     Indication: DERMATITIS ATOPIC
     Dosage: 300 MG, QOW
     Route: 058
     Dates: start: 20190719

REACTIONS (5)
  - Injection site bruising [Unknown]
  - Product administered at inappropriate site [Unknown]
  - Colon cancer [Unknown]
  - Vision blurred [Unknown]
  - Therapy change [Unknown]

NARRATIVE: CASE EVENT DATE: 2019
